FAERS Safety Report 9214787 (Version 1)
Quarter: 2013Q2

REPORT INFORMATION
  Report Type: Spontaneous
  Country: GB (occurrence: GB)
  Receive Date: 20130405
  Receipt Date: 20130405
  Transmission Date: 20140414
  Serious: Yes (Disabling)
  Sender: FDA-Public Use
  Company Number: GB-BAYER-2013-042934

PATIENT
  Age: 62 Year
  Sex: Male
  Weight: 112 kg

DRUGS (14)
  1. CLOTRIMAZOLE [Suspect]
     Dosage: UNK
     Route: 003
     Dates: start: 20130326
  2. ALGESAL [DIETHYLAMINE SALICYLATE] [Concomitant]
     Dosage: UNK
     Dates: start: 20121205, end: 20130104
  3. AMOXICILLIN [Concomitant]
     Dosage: UNK
     Dates: start: 20130319, end: 20130326
  4. CETIRIZINE [Concomitant]
     Dosage: UNK
     Dates: start: 20130326
  5. CO-AMOXICLAV [Concomitant]
     Dosage: UNK
     Dates: start: 20130103, end: 20130110
  6. CO-CODAMOL [Concomitant]
     Dosage: UNK
     Dates: start: 20130103, end: 20130308
  7. FLUTICASONE [Concomitant]
     Dosage: UNK
     Dates: start: 20130116, end: 20130310
  8. IPRATROPIUM BROMIDE [Concomitant]
     Dosage: UNK
     Dates: start: 20130208, end: 20130308
  9. LACTULOSE [Concomitant]
     Dosage: UNK
     Dates: start: 20130319
  10. MONTELUKAST [Concomitant]
     Dosage: UNK
     Dates: start: 20121205
  11. PREDNISOLONE [Concomitant]
     Dosage: UNK
     Dates: start: 20130103
  12. SALBUTAMOL [Concomitant]
     Dosage: UNK
     Dates: start: 20130103, end: 20130308
  13. VENLAFAXINE [Concomitant]
     Dosage: UNK
     Dates: start: 20130116, end: 20130308
  14. VENLALIC XL [Concomitant]
     Dosage: UNK
     Dates: start: 20121115, end: 20130114

REACTIONS (3)
  - Application site urticaria [Unknown]
  - Penile oedema [Unknown]
  - Scrotal oedema [Unknown]
